FAERS Safety Report 15420842 (Version 1)
Quarter: 2018Q3

REPORT INFORMATION
  Report Type: Report from Study
  Country: AR (occurrence: AR)
  Receive Date: 20180924
  Receipt Date: 20180924
  Transmission Date: 20181010
  Serious: Yes (Other)
  Sender: FDA-Public Use
  Company Number: PHHY2018AR099899

PATIENT
  Sex: Male

DRUGS (1)
  1. ENTRESTO [Suspect]
     Active Substance: SACUBITRIL\VALSARTAN
     Indication: CARDIAC FAILURE
     Dosage: 1 DF (24 MG OF SACUBITRIL/26 MG OF VALSARTAN), QD
     Route: 065

REACTIONS (4)
  - Dyspnoea [Unknown]
  - Drug prescribing error [Not Recovered/Not Resolved]
  - Choking [Unknown]
  - Prescribed underdose [Not Recovered/Not Resolved]
